FAERS Safety Report 22302791 (Version 2)
Quarter: 2023Q2

REPORT INFORMATION
  Report Type: Spontaneous
  Country: US (occurrence: US)
  Receive Date: 20230510
  Receipt Date: 20230531
  Transmission Date: 20230722
  Serious: Yes (Hospitalization)
  Sender: FDA-Public Use
  Company Number: US-Vifor (International) Inc.-VIT-2023-03372

PATIENT
  Age: 27 Year
  Sex: Female
  Weight: 58.4 kg

DRUGS (2)
  1. MIRCERA [Suspect]
     Active Substance: METHOXY POLYETHYLENE GLYCOL-EPOETIN BETA
     Indication: Anaemia
     Dosage: AT 07:00, (BI-WEEKLY
     Route: 040
     Dates: start: 20230414, end: 20230414
  2. CINACALCET [Concomitant]
     Active Substance: CINACALCET

REACTIONS (3)
  - Loss of consciousness [Recovered/Resolved]
  - Blood pressure decreased [Recovered/Resolved]
  - Blood pressure systolic increased [Recovered/Resolved]

NARRATIVE: CASE EVENT DATE: 20230414
